FAERS Safety Report 4613699-1 (Version None)
Quarter: 2005Q1

REPORT INFORMATION
  Report Type: 
  Country: None (occurrence: None)
  Receive Date: 20050318
  Receipt Date: 20050318
  Transmission Date: 20050727
  Serious: Yes (Hospitalization)
  Sender: FDA-Public Use
  Company Number: None

PATIENT
  Age: 68 Year
  Sex: Male
  Weight: 58.9676 kg

DRUGS (1)
  1. LABETOLOL IV [Suspect]
     Indication: HYPERTENSIVE EMERGENCY

REACTIONS (1)
  - BRONCHOSPASM [None]
